FAERS Safety Report 24063999 (Version 1)
Quarter: 2024Q3

REPORT INFORMATION
  Report Type: Report from Study
  Country: US (occurrence: US)
  Receive Date: 20240709
  Receipt Date: 20240709
  Transmission Date: 20241017
  Serious: Yes (Hospitalization)
  Sender: ABBVIE
  Company Number: US-ABBVIE-5826306

PATIENT
  Sex: Male

DRUGS (2)
  1. DUOPA [Suspect]
     Active Substance: CARBIDOPA\LEVODOPA
     Indication: Parkinson^s disease
     Route: 050
     Dates: start: 202204
  2. DUOPA [Suspect]
     Active Substance: CARBIDOPA\LEVODOPA
     Dosage: DUOPA (100ML X 7)4.63-20MG/ MORNING DOSE: 13ML, CONTINUOUS DOSE: 4.1 ML/HR, ED: 1ML EVERY 2 HOURS...
     Route: 050

REACTIONS (4)
  - Giant cell arteritis [Unknown]
  - Device dislocation [Unknown]
  - Device physical property issue [Unknown]
  - Device breakage [Unknown]
